FAERS Safety Report 6193718-4 (Version None)
Quarter: 2009Q2

REPORT INFORMATION
  Report Type: 
  Country: None (occurrence: None)
  Receive Date: 20090518
  Receipt Date: 20090508
  Transmission Date: 20091009
  Serious: Yes (Other)
  Sender: FDA-Public Use
  Company Number: US-ELI_LILLY_AND_COMPANY-US200905000203

PATIENT
  Sex: Male
  Weight: 108.84 kg

DRUGS (6)
  1. BYETTA [Suspect]
     Indication: TYPE 2 DIABETES MELLITUS
     Dosage: 5 UG, 2/D
     Dates: start: 20070924, end: 20071021
  2. BYETTA [Suspect]
     Dosage: 10 UG, 2/D
     Dates: start: 20071021, end: 20090414
  3. ZOCOR [Concomitant]
     Indication: BLOOD CHOLESTEROL INCREASED
     Dosage: 80 MG, DAILY (1/D)
     Dates: end: 20090414
  4. METFORMIN HCL [Concomitant]
     Indication: DIABETES MELLITUS
     Dosage: 1000 MG, 2/D
  5. ACTOS [Concomitant]
     Indication: DIABETES MELLITUS
     Dosage: 45 MG, DAILY (1/D)
  6. TRAZODONE HCL [Concomitant]
     Indication: INSOMNIA
     Dosage: 50 MG, EACH EVENING

REACTIONS (4)
  - DYSPEPSIA [None]
  - NAUSEA [None]
  - PANCREATITIS [None]
  - WEIGHT INCREASED [None]
